FAERS Safety Report 10639563 (Version 1)
Quarter: 2014Q4

REPORT INFORMATION
  Report Type: Spontaneous
  Country: BR (occurrence: BR)
  Receive Date: 20141209
  Receipt Date: 20141209
  Transmission Date: 20150529
  Serious: Yes (Other)
  Sender: FDA-Public Use
  Company Number: BR-AMGEN-BRASP2014094157

PATIENT
  Age: 54 Year
  Sex: Female
  Weight: 60 kg

DRUGS (7)
  1. TACROLIMUS. [Concomitant]
     Active Substance: TACROLIMUS
  2. OMEPRAZOL                          /00661201/ [Concomitant]
     Active Substance: OMEPRAZOLE
  3. MIMPARA [Suspect]
     Active Substance: CINACALCET HYDROCHLORIDE
     Indication: PRODUCT USED FOR UNKNOWN INDICATION
     Dosage: 30 MG, QD
     Route: 048
  4. MIMPARA [Suspect]
     Active Substance: CINACALCET HYDROCHLORIDE
     Route: 048
  5. GLIFAGE [Concomitant]
     Active Substance: METFORMIN HYDROCHLORIDE
     Dosage: UNK UNK, BID
  6. ATENOLOL. [Concomitant]
     Active Substance: ATENOLOL
  7. PREDNISONA [Concomitant]
     Active Substance: PREDNISONE

REACTIONS (5)
  - Diabetes mellitus [Unknown]
  - Renal disorder [Unknown]
  - Osteitis [Unknown]
  - Blood parathyroid hormone increased [Unknown]
  - Parathyroid cyst [Unknown]
